FAERS Safety Report 16066207 (Version 1)
Quarter: 2019Q2

REPORT INFORMATION
  Report Type: Spontaneous
  Country: US (occurrence: US)
  Receive Date: 20190312
  Receipt Date: 20190312
  Transmission Date: 20190711
  Serious: Yes (Hospitalization)
  Sender: FDA-Public Use
  Company Number: None

PATIENT
  Age: 66 Year
  Sex: Female
  Weight: 56.3 kg

DRUGS (10)
  1. VANCOMYCIN [Concomitant]
     Active Substance: VANCOMYCIN
     Dates: start: 20190119, end: 20190130
  2. PHYTONADIONE. [Concomitant]
     Active Substance: PHYTONADIONE
     Dates: start: 20190120, end: 20190203
  3. MELATONIN [Concomitant]
     Active Substance: MELATONIN
     Dates: start: 20181208
  4. DULOXETINE. [Concomitant]
     Active Substance: DULOXETINE
     Dates: start: 20181107
  5. MEROPENEM. [Concomitant]
     Active Substance: MEROPENEM
     Dates: start: 20190120, end: 20190204
  6. SENNA [Concomitant]
     Active Substance: SENNA LEAF\SENNOSIDES\SENNOSIDES A AND B
     Dates: start: 20181116
  7. DOCUSATE [Concomitant]
     Active Substance: DOCUSATE
     Dates: start: 20190120, end: 20190125
  8. CEFAPIME [Concomitant]
     Dates: start: 20190119, end: 20190119
  9. PANTOPRAZOLE [Concomitant]
     Active Substance: PANTOPRAZOLE
     Dates: start: 20181117
  10. YESCARTA [Suspect]
     Active Substance: AXICABTAGENE CILOLEUCEL
     Indication: DIFFUSE LARGE B-CELL LYMPHOMA
     Dosage: ?          OTHER FREQUENCY:ONCE;?
     Route: 041
     Dates: start: 20190122

REACTIONS (2)
  - CAR T-cell-related encephalopathy syndrome [None]
  - Cytokine release syndrome [None]

NARRATIVE: CASE EVENT DATE: 20190127
